FAERS Safety Report 11402367 (Version 1)
Quarter: 2015Q3

REPORT INFORMATION
  Report Type: Spontaneous
  Country: US (occurrence: US)
  Receive Date: 20150821
  Receipt Date: 20150821
  Transmission Date: 20151125
  Serious: No
  Sender: FDA-Public Use
  Company Number: US-ROCHE-1276767

PATIENT
  Sex: Female
  Weight: 62.2 kg

DRUGS (4)
  1. PEGASYS [Suspect]
     Active Substance: PEGINTERFERON ALFA-2A
     Route: 058
     Dates: start: 20130916
  2. COPEGUS [Suspect]
     Active Substance: RIBAVIRIN
     Indication: CHRONIC HEPATITIS C
     Dosage: IN DIVIDED DOSES (600/400)
     Route: 048
     Dates: start: 20130909
  3. PEGASYS [Suspect]
     Active Substance: PEGINTERFERON ALFA-2A
     Indication: CHRONIC HEPATITIS C
     Dosage: PROCLICK AUTOINJECTOR
     Route: 058
     Dates: start: 20130909
  4. COPEGUS [Suspect]
     Active Substance: RIBAVIRIN
     Dosage: IN DIVIDED DOSES (400/400), REDUCED DOSE
     Route: 048
     Dates: start: 20130913

REACTIONS (4)
  - Hypotension [Unknown]
  - Anaemia [Unknown]
  - Vertigo [Unknown]
  - Paraesthesia [Unknown]
